FAERS Safety Report 9543683 (Version 1)
Quarter: 2013Q2

REPORT INFORMATION
  Report Type: Spontaneous
  Country: US (occurrence: None)
  Receive Date: 20130524
  Receipt Date: 20130524
  Transmission Date: 20140414
  Serious: Yes (Other)
  Sender: FDA-Public Use
  Company Number: PHEH2012US024834

PATIENT
  Age: 60 Year
  Sex: Female
  Weight: 64.4 kg

DRUGS (6)
  1. GILENYA (FINGOLIMOD) CAPSULE, 0.5 MG [Suspect]
     Indication: MULTIPLE SCLEROSIS
     Dosage: 0.5 MG, QD, ORAL
     Route: 048
     Dates: start: 20130330
  2. BENICAR (OLMESARTAN MEDOXOMIL), 20 MG [Concomitant]
  3. ARMOUR THYROID (THYROID), 60 MG [Concomitant]
  4. ESTRIOL (ESTRIOL), 6 MG [Concomitant]
  5. IBUPROFEN (IBUPROFEN), 800 MG [Concomitant]
  6. VITAMIN D (ERGOCALCIFEROL) [Concomitant]

REACTIONS (4)
  - Cough [None]
  - Sneezing [None]
  - Oropharyngeal pain [None]
  - Upper respiratory tract infection [None]
